FAERS Safety Report 4570416-1 (Version None)
Quarter: 2005Q1

REPORT INFORMATION
  Report Type: 
  Country: None (occurrence: None)
  Receive Date: 20050204
  Receipt Date: 20041111
  Transmission Date: 20050727
  Serious: Yes (Other)
  Sender: FDA-Public Use
  Company Number: JP-MERCK-0411USA02685

PATIENT
  Age: 76 Year
  Sex: Female

DRUGS (10)
  1. FOSAMAX [Suspect]
     Indication: OSTEOPOROSIS
     Route: 048
     Dates: start: 20040928, end: 20041027
  2. ADONA [Suspect]
     Route: 048
     Dates: start: 20041022
  3. CINAL [Suspect]
     Route: 048
     Dates: start: 20041022
  4. CIRCULETIN [Suspect]
     Route: 048
     Dates: start: 20041022
  5. NORVASC [Suspect]
     Route: 048
  6. DIOVAN [Suspect]
     Route: 048
  7. SELBEX [Suspect]
     Route: 048
  8. MAGNESIUM OXIDE [Suspect]
     Route: 048
  9. GASTER [Suspect]
     Route: 048
  10. MOBIC [Concomitant]
     Route: 048
     Dates: start: 20040916, end: 20041023

REACTIONS (1)
  - RETINAL MICROANEURYSMS [None]
